FAERS Safety Report 8800102 (Version 1)
Quarter: 2012Q4

REPORT INFORMATION
  Report Type: Spontaneous
  Country: US (occurrence: None)
  Receive Date: 20120918
  Receipt Date: 20120918
  Transmission Date: 20130627
  Serious: Yes (Other)
  Sender: FDA-Public Use
  Company Number: None

PATIENT
  Age: 34 Year
  Sex: Female
  Weight: 68.04 kg

DRUGS (1)
  1. AMOX TR-K CLV [Suspect]
     Indication: INFECTION
     Dosage: a tablet twice a day 7days pill
     Dates: start: 20120908, end: 20120914

REACTIONS (4)
  - Vulvovaginal mycotic infection [None]
  - Skin exfoliation [None]
  - Fungal infection [None]
  - Pruritus [None]
